FAERS Safety Report 6504450-9 (Version None)
Quarter: 2009Q4

REPORT INFORMATION
  Report Type: 
  Country: None (occurrence: None)
  Receive Date: 20091215
  Receipt Date: 20091207
  Transmission Date: 20100525
  Serious: Yes (Other)
  Sender: FDA-Public Use
  Company Number: 2009SP040197

PATIENT
  Age: 53 Year
  Sex: Female

DRUGS (1)
  1. SAPHRIS [Suspect]
     Indication: BIPOLAR DISORDER
     Dosage: 5 MG;BID;SL
     Route: 060

REACTIONS (10)
  - ALOPECIA [None]
  - AMNESIA [None]
  - DYSARTHRIA [None]
  - FOOD CRAVING [None]
  - HYPOAESTHESIA ORAL [None]
  - MEMORY IMPAIRMENT [None]
  - MUSCLE SPASMS [None]
  - PERIPHERAL COLDNESS [None]
  - TREMOR [None]
  - WEIGHT INCREASED [None]
